FAERS Safety Report 23527497 (Version 1)
Quarter: 2024Q1

REPORT INFORMATION
  Report Type: Other
  Country: CN (occurrence: CN)
  Receive Date: 20240215
  Receipt Date: 20240215
  Transmission Date: 20240410
  Serious: Yes (Other)
  Sender: FDA-Public Use
  Company Number: CN-GE HEALTHCARE-2024CSU001449

PATIENT
  Age: 68 Year
  Sex: Female
  Weight: 43 kg

DRUGS (2)
  1. OMNIPAQUE [Suspect]
     Active Substance: IOHEXOL
     Indication: Arteriogram
     Dosage: 100 ML, TOTAL
     Route: 013
     Dates: start: 20240122, end: 20240122
  2. OMNIPAQUE [Suspect]
     Active Substance: IOHEXOL
     Indication: Stent placement

REACTIONS (3)
  - Cardiogenic shock [Recovering/Resolving]
  - Cardiac failure acute [Recovering/Resolving]
  - Nephropathy toxic [Recovering/Resolving]

NARRATIVE: CASE EVENT DATE: 20240123
